FAERS Safety Report 5175418-2 (Version None)
Quarter: 2006Q4

REPORT INFORMATION
  Report Type: 
  Country: None (occurrence: None)
  Receive Date: 20061215
  Receipt Date: 20061130
  Transmission Date: 20070319
  Serious: Yes (Other)
  Sender: FDA-Public Use
  Company Number: US-BAYER-200616652BWH

PATIENT
  Age: 50 Year
  Sex: Male
  Weight: 72 kg

DRUGS (3)
  1. SORAFENIB [Suspect]
     Indication: RENAL CELL CARCINOMA STAGE UNSPECIFIED
     Dosage: TOTAL DAILY DOSE: 800 MG  UNIT DOSE: 200 MG
     Route: 048
     Dates: start: 20050601, end: 20060101
  2. SORAFENIB [Suspect]
     Dosage: TOTAL DAILY DOSE: 800 MG  UNIT DOSE: 200 MG
     Route: 048
     Dates: start: 20060101, end: 20061207
  3. VITAMIN CAP [Concomitant]

REACTIONS (7)
  - CONSTIPATION [None]
  - DIARRHOEA [None]
  - FATIGUE [None]
  - HYPOTRICHOSIS [None]
  - INTERSTITIAL LUNG DISEASE [None]
  - RASH [None]
  - RENAL CELL CARCINOMA STAGE UNSPECIFIED [None]
